FAERS Safety Report 24715038 (Version 1)
Quarter: 2024Q4

REPORT INFORMATION
  Report Type: Spontaneous
  Country: IN (occurrence: IN)
  Receive Date: 20241210
  Receipt Date: 20241210
  Transmission Date: 20250114
  Serious: Yes (Other)
  Sender: SANDOZ
  Company Number: IN-SANDOZ-SDZ2024IN100666

PATIENT
  Sex: Male

DRUGS (2)
  1. MYFORTIC [Suspect]
     Active Substance: MYCOPHENOLATE SODIUM
     Indication: Renal transplant
     Dosage: 360 MG, TID
     Route: 048
  2. TACROLIMUS [Suspect]
     Active Substance: TACROLIMUS
     Indication: Renal transplant
     Dosage: 4 MG, BID
     Route: 048

REACTIONS (8)
  - Hypovolaemic shock [Recovered/Resolved]
  - Oesophageal haemorrhage [Unknown]
  - Ischaemic hepatitis [Recovered/Resolved]
  - Hypothyroidism [Unknown]
  - Procedural haemorrhage [Unknown]
  - Hypotension [Unknown]
  - Blood glucose increased [Unknown]
  - Hypertension [Unknown]
